FAERS Safety Report 7621770-5 (Version None)
Quarter: 2011Q3

REPORT INFORMATION
  Report Type: 
  Country: None (occurrence: None)
  Receive Date: 20110719
  Receipt Date: 20110711
  Transmission Date: 20111222
  Serious: Yes (Hospitalization)
  Sender: FDA-Public Use
  Company Number: US-ASTRAZENECA-2011SE41058

PATIENT
  Age: 69 Year
  Sex: Female
  Weight: 68.9 kg

DRUGS (7)
  1. METFORMIN HCL [Concomitant]
  2. ESTRADIOL [Concomitant]
  3. ALPRAZOLAM [Concomitant]
  4. FLUOXETINE [Concomitant]
  5. ACCOLATE [Suspect]
     Indication: ASTHMA
     Dosage: 20 MG TWO TIMES A DAY
     Route: 048
     Dates: start: 20090101
  6. GABAPENTIN [Concomitant]
  7. VENOFEXIN [Concomitant]

REACTIONS (4)
  - PNEUMONIA [None]
  - WEIGHT INCREASED [None]
  - DIABETES MELLITUS INADEQUATE CONTROL [None]
  - PSORIASIS [None]
